FAERS Safety Report 22287758 (Version 1)
Quarter: 2023Q2

REPORT INFORMATION
  Report Type: Spontaneous
  Country: IT (occurrence: IT)
  Receive Date: 20230505
  Receipt Date: 20230505
  Transmission Date: 20230721
  Serious: Yes (Other)
  Sender: FDA-Public Use
  Company Number: None

PATIENT
  Age: 10 Year
  Sex: Male
  Weight: 82 kg

DRUGS (1)
  1. ACYCLOVIR [Suspect]
     Active Substance: ACYCLOVIR
     Indication: Stomatitis
     Dosage: 10 ML EVERY 6 HOURS FOR 5 DAYS
     Route: 065
     Dates: start: 20230407, end: 20230409

REACTIONS (1)
  - Hallucination, visual [Recovered/Resolved]
